FAERS Safety Report 18713913 (Version 4)
Quarter: 2021Q2

REPORT INFORMATION
  Report Type: Report from Study
  Country: MX (occurrence: MX)
  Receive Date: 20210107
  Receipt Date: 20210403
  Transmission Date: 20210717
  Serious: Yes (Death, Hospitalization, Other)
  Sender: FDA-Public Use
  Company Number: NVSC2021MX002223

PATIENT
  Age: 71 Year
  Sex: Male
  Weight: 75 kg

DRUGS (5)
  1. TAFINLAR [Suspect]
     Active Substance: DABRAFENIB MESYLATE
     Dosage: 2 DF, QD (75 MG)
     Route: 048
     Dates: start: 202006
  2. TAFINLAR [Suspect]
     Active Substance: DABRAFENIB MESYLATE
     Indication: METASTATIC MALIGNANT MELANOMA
     Dosage: 2 DF (75 MG, ONE CAPSULE IN THE MORNING IN A FASTING STATE AND ONE AT NIGHT)
     Route: 065
  3. TAFINLAR [Suspect]
     Active Substance: DABRAFENIB MESYLATE
     Dosage: 4 DF, QD (0.5 MG)
     Route: 065
  4. MEKINIST [Suspect]
     Active Substance: TRAMETINIB DIMETHYL SULFOXIDE
     Indication: METASTATIC MALIGNANT MELANOMA
     Dosage: 4 DF, QD (0.5 MG)
     Route: 048
     Dates: start: 202006
  5. MEKINIST [Suspect]
     Active Substance: TRAMETINIB DIMETHYL SULFOXIDE
     Dosage: 0.5 MG
     Route: 048
     Dates: start: 202008

REACTIONS (14)
  - Decreased appetite [Unknown]
  - Nausea [Unknown]
  - Brain neoplasm [Unknown]
  - Second primary malignancy [Unknown]
  - Disorientation [Unknown]
  - Neoplasm [Unknown]
  - Noninfective encephalitis [Not Recovered/Not Resolved]
  - Death [Fatal]
  - Paramnesia [Unknown]
  - Blood glucose increased [Unknown]
  - Neoplasm progression [Unknown]
  - Vertigo [Unknown]
  - Memory impairment [Unknown]
  - Delirium [Unknown]

NARRATIVE: CASE EVENT DATE: 202008
